FAERS Safety Report 8998198 (Version 2)
Quarter: 2013Q2

REPORT INFORMATION
  Report Type: Report from Study
  Country: US (occurrence: US)
  Receive Date: 20130104
  Receipt Date: 20130408
  Transmission Date: 20140414
  Serious: Yes (Hospitalization, Other)
  Sender: FDA-Public Use
  Company Number: US-ASTELLAS-2013US000073

PATIENT
  Age: 70 Year
  Sex: Female

DRUGS (4)
  1. ERLOTINIB TABLET [Suspect]
     Indication: NON-SMALL CELL LUNG CANCER
     Dosage: 150 MG, UID/QD
     Route: 048
     Dates: start: 20120906, end: 20121106
  2. MDX-1106 [Suspect]
     Indication: NON-SMALL CELL LUNG CANCER
     Dosage: 3 MG/KG, UID/QD
     Route: 042
     Dates: start: 20120906, end: 20121106
  3. GLIPIZIDE [Concomitant]
     Indication: DIABETES MELLITUS
     Dosage: UNK
     Route: 065
  4. PIOGLITAZONE HYDROCHLORIDE [Concomitant]
     Indication: DIABETES MELLITUS
     Dosage: UNK
     Route: 065

REACTIONS (9)
  - Hypophagia [Unknown]
  - Renal tubular necrosis [Unknown]
  - Diabetic nephropathy [Unknown]
  - Blood creatinine increased [Recovered/Resolved]
  - Urinary tract infection [Not Recovered/Not Resolved]
  - Device related infection [Not Recovered/Not Resolved]
  - Pyuria [Unknown]
  - Dehydration [Recovered/Resolved]
  - Hypoglycaemia [Recovered/Resolved]
